FAERS Safety Report 4480132-2 (Version None)
Quarter: 2004Q4

REPORT INFORMATION
  Report Type: 
  Country: None (occurrence: None)
  Receive Date: 20041020
  Receipt Date: 20041013
  Transmission Date: 20050328
  Serious: Yes (Hospitalization)
  Sender: FDA-Public Use
  Company Number: SG-MERCK-0410SGP00006

PATIENT
  Age: 40 Year
  Sex: Male

DRUGS (3)
  1. ZETIA [Suspect]
     Route: 048
     Dates: start: 20040501, end: 20040701
  2. SIMVASTATIN [Concomitant]
     Route: 065
  3. [THERAPY UNSPECIFIED] [Concomitant]
     Route: 065

REACTIONS (2)
  - RASH GENERALISED [None]
  - WEIGHT DECREASED [None]
